FAERS Safety Report 17024337 (Version 1)
Quarter: 2019Q4

REPORT INFORMATION
  Report Type: Report from Study
  Country: US (occurrence: US)
  Receive Date: 20191113
  Receipt Date: 20191113
  Transmission Date: 20200122
  Serious: Yes (Hospitalization, Other)
  Sender: FDA-Public Use
  Company Number: US-ROCHE-1658870

PATIENT
  Age: 36 Year
  Sex: Female
  Weight: 79.4 kg

DRUGS (7)
  1. IRINOTECAN [Suspect]
     Active Substance: IRINOTECAN
     Indication: COLORECTAL CANCER METASTATIC
     Dosage: OVER 90 MIN, DAY 1, 15 AFTER CETUXIMAB?LAST DOSE PRIOR TO SAE: 28/OCT/2015
     Route: 042
  2. BEVACIZUMAB. [Suspect]
     Active Substance: BEVACIZUMAB
     Indication: PRODUCT USED FOR UNKNOWN INDICATION
     Route: 065
     Dates: end: 20151008
  3. CETUXIMAB. [Suspect]
     Active Substance: CETUXIMAB
     Indication: COLORECTAL CANCER METASTATIC
     Dosage: OVER 120 MIN, FOR INITIAL DOSE AND OVER 60 MIN FOR SUBSEQUENT DOSES, ADMINISTERED ON DAY 1 AND 15 OF
     Route: 042
  4. VEMURAFENIB. [Suspect]
     Active Substance: VEMURAFENIB
     Dosage: LAST DOSE ADMINISTERED - 18/DEC/2015
     Route: 048
     Dates: start: 20151216
  5. IRINOTECAN [Suspect]
     Active Substance: IRINOTECAN
     Dosage: LAST DOSE ADMINISTERED - 16/DEC/2015
     Route: 042
     Dates: start: 20151216
  6. CETUXIMAB. [Suspect]
     Active Substance: CETUXIMAB
     Dosage: LAST DOSE ADMINISTERED - 16/DEC/2015
     Route: 042
     Dates: start: 20151216
  7. VEMURAFENIB. [Suspect]
     Active Substance: VEMURAFENIB
     Indication: COLORECTAL CANCER METASTATIC
     Dosage: DAY 1 THROUGH 28?LAST DOSE: 11/02/2015
     Route: 048
     Dates: start: 20151028

REACTIONS (9)
  - Nausea [Recovering/Resolving]
  - Decreased appetite [Unknown]
  - Vomiting [Unknown]
  - Small intestinal obstruction [Unknown]
  - Nausea [Unknown]
  - Fatigue [Unknown]
  - Vomiting [Unknown]
  - Dehydration [Unknown]
  - Urinary tract infection [Unknown]

NARRATIVE: CASE EVENT DATE: 20151102
